FAERS Safety Report 13586764 (Version 1)
Quarter: 2017Q2

REPORT INFORMATION
  Report Type: Spontaneous
  Country: US (occurrence: US)
  Receive Date: 20170525
  Receipt Date: 20170525
  Transmission Date: 20170830
  Serious: Yes (Other)
  Sender: FDA-Public Use
  Company Number: None

PATIENT
  Age: 75 Year
  Sex: Female
  Weight: 72.19 kg

DRUGS (2)
  1. FORTEO [Suspect]
     Active Substance: TERIPARATIDE
     Indication: PATHOLOGICAL FRACTURE
     Dosage: 20MCG DAILY SUB Q INJECTION
     Route: 058
  2. FORTEO [Suspect]
     Active Substance: TERIPARATIDE
     Indication: SENILE OSTEOPOROSIS
     Dosage: 20MCG DAILY SUB Q INJECTION
     Route: 058

REACTIONS (5)
  - Arthropathy [None]
  - Muscular weakness [None]
  - Muscle spasms [None]
  - Blood calcium increased [None]
  - Limb discomfort [None]

NARRATIVE: CASE EVENT DATE: 20170524
